FAERS Safety Report 7068836-9 (Version None)
Quarter: 2010Q4

REPORT INFORMATION
  Report Type: 
  Country: None (occurrence: None)
  Receive Date: 20101028
  Receipt Date: 20101018
  Transmission Date: 20110411
  Serious: Yes (Death, Hospitalization)
  Sender: FDA-Public Use
  Company Number: US-BAXTER-2010BH025329

PATIENT
  Age: 47 Year
  Sex: Male

DRUGS (1)
  1. DIANEAL [Suspect]
     Indication: PERITONEAL DIALYSIS
     Route: 033
     Dates: start: 20100610

REACTIONS (5)
  - HEPATIC FAILURE [None]
  - MULTI-ORGAN FAILURE [None]
  - OESOPHAGITIS [None]
  - PYREXIA [None]
  - SYNCOPE [None]
